FAERS Safety Report 24964494 (Version 1)
Quarter: 2025Q1

REPORT INFORMATION
  Report Type: Spontaneous
  Country: ES (occurrence: ES)
  Receive Date: 20250213
  Receipt Date: 20250213
  Transmission Date: 20250409
  Serious: Yes (Other)
  Sender: RANBAXY
  Company Number: None

PATIENT
  Age: 5 Year
  Sex: Male

DRUGS (5)
  1. CELECOXIB [Suspect]
     Active Substance: CELECOXIB
     Indication: Respiratory papilloma
     Dosage: DOSE REDUCED AND WITHDRAWN 5 WEEKS AFTER INITIATION OF THE REDUCED DOSE.
     Route: 048
  2. ERLOTINIB [Suspect]
     Active Substance: ERLOTINIB
     Indication: Respiratory papilloma
     Dosage: 150 MILLIGRAM, DAILY
     Route: 048
  3. BEVACIZUMAB [Suspect]
     Active Substance: BEVACIZUMAB
     Indication: Respiratory papilloma
     Route: 065
  4. BEVACIZUMAB [Suspect]
     Active Substance: BEVACIZUMAB
     Route: 026
  5. TACROLIMUS [Concomitant]
     Active Substance: TACROLIMUS
     Indication: Immunosuppressant drug therapy
     Route: 065

REACTIONS (5)
  - Respiratory failure [Unknown]
  - Renal impairment [Recovered/Resolved]
  - Respiratory papilloma [Unknown]
  - Postoperative thoracic procedure complication [Unknown]
  - Proteinuria [Unknown]
